FAERS Safety Report 5448579-5 (Version None)
Quarter: 2007Q3

REPORT INFORMATION
  Report Type: 
  Country: None (occurrence: None)
  Receive Date: 20070911
  Receipt Date: 20070909
  Transmission Date: 20080115
  Serious: Yes (Hospitalization)
  Sender: FDA-Public Use
  Company Number: AU-BRISTOL-MYERS SQUIBB COMPANY-13902697

PATIENT
  Age: 57 Year
  Sex: Male
  Weight: 86 kg

DRUGS (4)
  1. CISPLATIN [Suspect]
     Indication: BILE DUCT CANCER NON-RESECTABLE
     Dosage: FIRST CYCLE OF CISPLATIN WAS ON 07-JUN-2007 (DAY ONE, CYCLE ONE).
     Dates: start: 20060614
  2. GEMZAR [Suspect]
     Indication: BILE DUCT CANCER NON-RESECTABLE
     Dosage: FIRST CYCLE OF GEMCITABINE HCL WAS STARTED ON 07-JUN-2007 (DAY ONE, CYCLE ONE)
     Dates: start: 20060614
  3. OMEPRAZOLE [Concomitant]
     Indication: DYSPEPSIA
     Dates: start: 20060627
  4. VITAMIN CAP [Concomitant]
     Indication: ROUTINE HEALTH MAINTENANCE
     Dates: start: 20060627

REACTIONS (1)
  - STREPTOCOCCAL SEPSIS [None]
